FAERS Safety Report 4536598-2 (Version None)
Quarter: 2004Q4

REPORT INFORMATION
  Report Type: 
  Country: None (occurrence: None)
  Receive Date: 20041221
  Receipt Date: 20041221
  Transmission Date: 20050328
  Serious: Yes (Hospitalization)
  Sender: FDA-Public Use
  Company Number: None

PATIENT
  Sex: Female
  Weight: 68.0396 kg

DRUGS (1)
  1. ALEVE [Suspect]
     Indication: ADVERSE DRUG REACTION
     Dosage: 1 TABLET
     Dates: start: 20031027, end: 20031027

REACTIONS (3)
  - DYSPNOEA [None]
  - HEART RATE INCREASED [None]
  - SYNCOPE [None]
